FAERS Safety Report 26121745 (Version 2)
Quarter: 2025Q4

REPORT INFORMATION
  Report Type: Spontaneous
  Country: EU (occurrence: EU)
  Receive Date: 20251204
  Receipt Date: 20251215
  Transmission Date: 20260117
  Serious: Yes (Hospitalization)
  Sender: TEVA
  Company Number: EU-TEVA-VS-3398158

PATIENT
  Age: 23 Year
  Sex: Female

DRUGS (5)
  1. LEVETIRACETAM [Suspect]
     Active Substance: LEVETIRACETAM
     Indication: Febrile infection-related epilepsy syndrome
     Route: 065
  2. LACOSAMIDE [Suspect]
     Active Substance: LACOSAMIDE
     Indication: Febrile infection-related epilepsy syndrome
     Route: 065
  3. MIDAZOLAM [Suspect]
     Active Substance: MIDAZOLAM
     Indication: Febrile infection-related epilepsy syndrome
     Route: 065
  4. DIPHENHYDRAMINE HYDROCHLORIDE [Suspect]
     Active Substance: DIPHENHYDRAMINE HYDROCHLORIDE
     Indication: Suspected suicide attempt
     Route: 065
  5. IBUPROFEN [Suspect]
     Active Substance: IBUPROFEN
     Indication: Suspected suicide attempt
     Route: 065

REACTIONS (3)
  - Toxicity to various agents [Recovered/Resolved]
  - Febrile infection-related epilepsy syndrome [Recovered/Resolved]
  - Drug ineffective [Unknown]
